FAERS Safety Report 5680807-3 (Version None)
Quarter: 2008Q1

REPORT INFORMATION
  Report Type: 
  Country: None (occurrence: None)
  Receive Date: 20080325
  Receipt Date: 20080314
  Transmission Date: 20080703
  Serious: Yes (Other)
  Sender: FDA-Public Use
  Company Number: S08-USA-01025-01

PATIENT
  Age: 41 Year
  Sex: Male
  Weight: 79.3795 kg

DRUGS (1)
  1. LEXAPRO [Suspect]
     Indication: TINNITUS
     Dosage: 20 MG QD PO
     Route: 048
     Dates: start: 20040101, end: 20070501

REACTIONS (6)
  - IMPULSIVE BEHAVIOUR [None]
  - IRRITABILITY [None]
  - LIBIDO INCREASED [None]
  - PANIC ATTACK [None]
  - UNEVALUABLE EVENT [None]
  - WEIGHT INCREASED [None]
